FAERS Safety Report 4639128-X (Version None)
Quarter: 2005Q2

REPORT INFORMATION
  Report Type: 
  Country: None (occurrence: None)
  Receive Date: 20050419
  Receipt Date: 20050411
  Transmission Date: 20051028
  Serious: Yes (Other)
  Sender: FDA-Public Use
  Company Number: PHFR2005GB01482

PATIENT
  Age: 39 Year
  Sex: Male
  Weight: 88 kg

DRUGS (3)
  1. CITALOPRAM HYDROBROMIDE [Concomitant]
     Route: 048
  2. AMISULPRIDE [Concomitant]
     Route: 048
     Dates: start: 20040401
  3. CLOZARIL [Suspect]
     Indication: SCHIZOPHRENIA
     Dosage: UNK, UNK
     Dates: start: 20000101

REACTIONS (3)
  - MYELOPROLIFERATIVE DISORDER [None]
  - THROMBOCYTHAEMIA [None]
  - THROMBOCYTOPENIA [None]
